FAERS Safety Report 6471280-6 (Version None)
Quarter: 2009Q4

REPORT INFORMATION
  Report Type: 
  Country: None (occurrence: None)
  Receive Date: 20091203
  Receipt Date: 20080527
  Transmission Date: 20100525
  Serious: Yes (Death)
  Sender: FDA-Public Use
  Company Number: US-ELI_LILLY_AND_COMPANY-US200802003859

PATIENT
  Sex: Female

DRUGS (13)
  1. CYMBALTA [Suspect]
     Indication: DEPRESSION
     Dosage: 60 MG, UNK
     Dates: start: 20080422
  2. CYMBALTA [Suspect]
     Dosage: 90 MG, UNK
  3. CYMBALTA [Suspect]
     Dosage: 120 MG, UNK
  4. INSULIN [Concomitant]
  5. LANTUS [Concomitant]
  6. LISINOPRIL [Concomitant]
     Dosage: 40 MG, UNK
  7. LIPITOR [Concomitant]
     Dosage: 10 MG, UNK
  8. MULTI-VITAMINS [Concomitant]
  9. METOPROLOL [Concomitant]
     Dosage: 50 MG, UNK
  10. NIFEDIPINE [Concomitant]
     Dosage: 60 MG, UNK
  11. OXYCODONE HCL [Concomitant]
     Dosage: 10 MG, 2/D
  12. RENAGEL [Concomitant]
  13. LEVOTHYROXINE SODIUM [Concomitant]
     Dosage: 25 UG, DAILY (1/D)

REACTIONS (2)
  - DIABETES MELLITUS [None]
  - RENAL FAILURE CHRONIC [None]
